FAERS Safety Report 19209401 (Version 1)
Quarter: 2021Q2

REPORT INFORMATION
  Report Type: Spontaneous
  Country: FR (occurrence: FR)
  Receive Date: 20210504
  Receipt Date: 20210504
  Transmission Date: 20210717
  Serious: Yes (Other)
  Sender: FDA-Public Use
  Company Number: FR-SUN PHARMACEUTICAL INDUSTRIES LTD-2021RR-294092

PATIENT
  Age: 49 Year
  Sex: Female

DRUGS (1)
  1. TRAMADOL. [Suspect]
     Active Substance: TRAMADOL
     Indication: BACK PAIN
     Dosage: 3000 MILLIGRAM, 1/DAY
     Route: 048
     Dates: start: 2004

REACTIONS (7)
  - Overdose [Unknown]
  - Hypertension [Unknown]
  - Cerebrovascular accident [Unknown]
  - Type 2 diabetes mellitus [Unknown]
  - Intentional product misuse [Unknown]
  - Hypercholesterolaemia [Unknown]
  - Dependence [Recovered/Resolved]

NARRATIVE: CASE EVENT DATE: 2018
